FAERS Safety Report 7685711-7 (Version None)
Quarter: 2011Q3

REPORT INFORMATION
  Report Type: 
  Country: None (occurrence: None)
  Receive Date: 20110815
  Receipt Date: 20110815
  Transmission Date: 20111222
  Serious: Yes (Disabling)
  Sender: FDA-Public Use
  Company Number: None

PATIENT
  Sex: Female
  Weight: 68.0396 kg

DRUGS (2)
  1. ZICAM [Suspect]
     Indication: NASAL CONGESTION
     Dosage: RECOMMENDED DROPS ONE COLD SEASON NASAL
     Route: 045
  2. ZICAM [Suspect]
     Indication: NASOPHARYNGITIS
     Dosage: RECOMMENDED DROPS ONE COLD SEASON NASAL
     Route: 045

REACTIONS (1)
  - HYPOSMIA [None]
